FAERS Safety Report 5106931-1 (Version None)
Quarter: 2006Q3

REPORT INFORMATION
  Report Type: 
  Country: None (occurrence: None)
  Receive Date: 20060918
  Receipt Date: 20060912
  Transmission Date: 20061208
  Serious: Yes (Other)
  Sender: FDA-Public Use
  Company Number: NL-BOEHRINGER INGELHEIM PHARMACEUTICALS, INC.-2006-NL-00246NL

PATIENT
  Sex: Female

DRUGS (5)
  1. MOVICOX 15 MG TABLETS [Suspect]
     Indication: PAIN
     Dates: start: 20060904, end: 20060905
  2. ACETYLSALICYLACID CARDIO CF DISP TABLET 80MG [Suspect]
     Indication: PAIN
     Dates: start: 19990715, end: 20060418
  3. ACETYLSALICYLACID CARDIO CF DISP TABLET 80MG [Suspect]
     Dates: start: 20060418, end: 20060903
  4. PANTOZOL TABLET MSR 20MG [Suspect]
     Indication: PAIN
     Dates: start: 20060904
  5. TEMAZEPAM CAPSULE 10MG [Concomitant]
     Dosage: 1 TABLET NOCTURNAL PRN
     Dates: start: 20040507

REACTIONS (2)
  - DRUG INTERACTION [None]
  - HAEMATOMA [None]
